FAERS Safety Report 4805449-0 (Version None)
Quarter: 2005Q4

REPORT INFORMATION
  Report Type: 
  Country: None (occurrence: None)
  Receive Date: 20051018
  Receipt Date: 20051005
  Transmission Date: 20060501
  Serious: Yes (Death)
  Sender: FDA-Public Use
  Company Number: 12626

PATIENT
  Age: 50 Year
  Sex: Male

DRUGS (3)
  1. FENTANYL [Suspect]
  2. MEPERIDINE [Suspect]
  3. ATRACURIUM [Suspect]

REACTIONS (2)
  - COMPLETED SUICIDE [None]
  - DRUG DEPENDENCE [None]
